FAERS Safety Report 5523552-7 (Version None)
Quarter: 2007Q4

REPORT INFORMATION
  Report Type: 
  Country: None (occurrence: None)
  Receive Date: 20071116
  Receipt Date: 20060706
  Transmission Date: 20080405
  Serious: Yes (Death, Life-Threatening, Hospitalization, Disabling)
  Sender: FDA-Public Use
  Company Number: CLOF-10752

PATIENT
  Age: 10 Year
  Sex: Male

DRUGS (6)
  1. CLOFARABINE. MFR: GENZYME [Suspect]
     Indication: ACUTE LYMPHOCYTIC LEUKAEMIA
     Dosage: 45.8 MG QD IV
     Route: 042
     Dates: start: 20060523, end: 20060701
  2. TEICOPLANIN [Concomitant]
  3. ACYCLOVIR [Concomitant]
  4. MEROPENEM [Concomitant]
  5. METRONIDAZOLE [Concomitant]
  6. RIBAVIRIN [Concomitant]

REACTIONS (9)
  - ADENOVIRUS INFECTION [None]
  - ASPERGILLOSIS [None]
  - BONE PAIN [None]
  - DIARRHOEA [None]
  - ILEUS [None]
  - LEUKOPENIA [None]
  - NEUTROPENIA [None]
  - PLATELET COUNT DECREASED [None]
  - SEPSIS [None]
